FAERS Safety Report 7955127-4 (Version None)
Quarter: 2011Q4

REPORT INFORMATION
  Report Type: 
  Country: None (occurrence: None)
  Receive Date: 20111202
  Receipt Date: 20111123
  Transmission Date: 20120403
  Serious: Yes (Death)
  Sender: FDA-Public Use
  Company Number: US-PERRIGO-11US010325

PATIENT
  Age: 47 Year
  Sex: Female

DRUGS (2)
  1. OPIOIDS [Suspect]
     Indication: FLANK PAIN
     Dosage: UNK
     Route: 065
  2. ACETAMINOPHEN [Suspect]
     Indication: FLANK PAIN
     Dosage: UNK
     Route: 048

REACTIONS (3)
  - LIVER INJURY [None]
  - TOXICITY TO VARIOUS AGENTS [None]
  - ACCIDENTAL OVERDOSE [None]
